FAERS Safety Report 19099590 (Version 1)
Quarter: 2021Q2

REPORT INFORMATION
  Report Type: Report from Study
  Country: US (occurrence: US)
  Receive Date: 20210406
  Receipt Date: 20210406
  Transmission Date: 20210717
  Serious: No
  Sender: FDA-Public Use
  Company Number: US-SUNOVION-2021SUN000929

PATIENT
  Sex: Male

DRUGS (2)
  1. KYNMOBI [Suspect]
     Active Substance: APOMORPHINE HYDROCHLORIDE
     Dosage: 15 MG
     Route: 060
     Dates: start: 20210311
  2. KYNMOBI [Suspect]
     Active Substance: APOMORPHINE HYDROCHLORIDE
     Dosage: 10 MG
     Route: 060
     Dates: start: 20210310

REACTIONS (5)
  - Nausea [Recovered/Resolved]
  - Somnolence [Recovering/Resolving]
  - Throat irritation [Recovered/Resolved]
  - Headache [Recovered/Resolved]
  - Blood pressure systolic decreased [Unknown]

NARRATIVE: CASE EVENT DATE: 20210310
